FAERS Safety Report 20885381 (Version 1)
Quarter: 2022Q2

REPORT INFORMATION
  Report Type: Spontaneous
  Country: US (occurrence: US)
  Receive Date: 20220527
  Receipt Date: 20220527
  Transmission Date: 20220720
  Serious: No
  Sender: FDA-Public Use
  Company Number: US-009507513-2205USA000407

PATIENT
  Sex: Male

DRUGS (1)
  1. JANUVIA [Suspect]
     Active Substance: SITAGLIPTIN PHOSPHATE
     Dosage: 100 MILLIGRAM, QD
     Route: 048
     Dates: start: 20220401

REACTIONS (3)
  - Product packaging quantity issue [Unknown]
  - Poor quality product administered [Unknown]
  - No adverse event [Unknown]

NARRATIVE: CASE EVENT DATE: 20220401
